FAERS Safety Report 9555409 (Version 1)
Quarter: 2013Q3

REPORT INFORMATION
  Report Type: Spontaneous
  Country: US (occurrence: None)
  Receive Date: 20130925
  Receipt Date: 20130925
  Transmission Date: 20140515
  Serious: Yes (Hospitalization)
  Sender: FDA-Public Use
  Company Number: None

PATIENT
  Age: 57 Year
  Sex: Male
  Weight: 72.58 kg

DRUGS (2)
  1. DEPAKOTE [Suspect]
     Indication: BIPOLAR DISORDER
     Dosage: ONE PILL
     Route: 048
     Dates: start: 20130729, end: 20130810
  2. LAMICTAL [Concomitant]

REACTIONS (2)
  - Mania [None]
  - Drug level decreased [None]
